FAERS Safety Report 6503939-6 (Version None)
Quarter: 2009Q4

REPORT INFORMATION
  Report Type: 
  Country: None (occurrence: None)
  Receive Date: 20091216
  Receipt Date: 20091216
  Transmission Date: 20100525
  Serious: Yes (Life-Threatening)
  Sender: FDA-Public Use
  Company Number: None

PATIENT
  Age: 20 Year
  Sex: Male
  Weight: 82.5547 kg

DRUGS (1)
  1. DIPRIVAN [Suspect]
     Indication: SEDATIVE THERAPY
     Dates: start: 20091214, end: 20091214

REACTIONS (3)
  - INFUSION RELATED REACTION [None]
  - PRODUCT QUALITY ISSUE [None]
  - PYREXIA [None]
